FAERS Safety Report 6260120-6 (Version None)
Quarter: 2009Q3

REPORT INFORMATION
  Report Type: 
  Country: None (occurrence: None)
  Receive Date: 20090708
  Receipt Date: 20090629
  Transmission Date: 20100115
  Serious: Yes (Death)
  Sender: FDA-Public Use
  Company Number: US-ELI_LILLY_AND_COMPANY-US200906003051

PATIENT
  Sex: Female

DRUGS (8)
  1. HUMULIN R [Suspect]
     Dosage: UNK, AS NEEDED
     Dates: start: 20081101
  2. CELEXA [Concomitant]
     Dosage: 40 MG, UNK
  3. METHOTREXATE [Concomitant]
  4. CYTOXAN [Concomitant]
  5. METHADONE [Concomitant]
  6. ELAVIL [Concomitant]
     Dosage: 75 UNK, EACH EVENING
  7. METFORMIN HCL [Concomitant]
     Dosage: 1000 MG, 2/D
  8. AMBIEN [Concomitant]
     Dosage: 10 MG, EACH EVENING

REACTIONS (1)
  - BREAST CANCER [None]
